FAERS Safety Report 24601838 (Version 1)
Quarter: 2024Q4

REPORT INFORMATION
  Report Type: Spontaneous
  Country: JP (occurrence: JP)
  Receive Date: 20241111
  Receipt Date: 20241111
  Transmission Date: 20250114
  Serious: Yes (Other)
  Sender: SANOFI AVENTIS
  Company Number: JP-SAKK-2024SA320593AA

PATIENT
  Age: 67 Year
  Sex: Female

DRUGS (1)
  1. KEVZARA [Suspect]
     Active Substance: SARILUMAB
     Indication: Rheumatoid arthritis
     Dosage: UNK UNK, Q3W
     Route: 058

REACTIONS (7)
  - Eosinophilic granulomatosis with polyangiitis [Unknown]
  - Malaise [Unknown]
  - Decreased appetite [Unknown]
  - Glomerulonephritis rapidly progressive [Unknown]
  - Proteinuria [Unknown]
  - Haematuria [Unknown]
  - Inappropriate schedule of product administration [Unknown]
